FAERS Safety Report 21286149 (Version 3)
Quarter: 2022Q3

REPORT INFORMATION
  Report Type: Report from Study
  Country: KR (occurrence: KR)
  Receive Date: 20220902
  Receipt Date: 20220912
  Transmission Date: 20221026
  Serious: Yes (Hospitalization)
  Sender: FDA-Public Use
  Company Number: KR-GLAXOSMITHKLINE-KR2022GSK123941

PATIENT

DRUGS (2)
  1. BELIMUMAB [Suspect]
     Active Substance: BELIMUMAB
     Indication: Systemic lupus erythematosus
     Dosage: 720 MG, FOR THE FIRST THREE INFUSIONS, EVERY 2 WEEKS AFTER THAT, EVERY 4 WEEKS
     Route: 042
     Dates: start: 20220727
  2. BELIMUMAB [Suspect]
     Active Substance: BELIMUMAB
     Dosage: 720 MG, FOR THE FIRST THREE INFUSIONS, EVERY 2 WEEKS AFTER THAT, EVERY 4 WEEKS
     Route: 042
     Dates: start: 20220810

REACTIONS (1)
  - Erythema [Recovered/Resolved]

NARRATIVE: CASE EVENT DATE: 20220821
